FAERS Safety Report 11135322 (Version 2)
Quarter: 2015Q2

REPORT INFORMATION
  Report Type: Report from Study
  Country: DE (occurrence: DE)
  Receive Date: 20150525
  Receipt Date: 20150610
  Transmission Date: 20150821
  Serious: Yes (Hospitalization)
  Sender: FDA-Public Use
  Company Number: PHHY2015DE060959

PATIENT
  Age: 28 Year
  Sex: Male
  Weight: 85 kg

DRUGS (10)
  1. GILENYA [Suspect]
     Active Substance: FINGOLIMOD HYDROCHLORIDE
     Indication: MULTIPLE SCLEROSIS
     Dosage: 0.5 MG
     Route: 065
     Dates: start: 20131212
  2. PANTOZOL [Concomitant]
     Active Substance: PANTOPRAZOLE SODIUM
     Indication: PRODUCT USED FOR UNKNOWN INDICATION
     Dosage: 1 DF, QD (1-0-0)
     Route: 065
  3. GALPENT [Concomitant]
     Active Substance: PENTAERYTHRITOL TETRANITRATE
     Indication: HYPERTENSION
     Dosage: 2 DF, BID (1-0-1)
     Route: 065
  4. VESIKUR [Concomitant]
     Active Substance: SOLIFENACIN SUCCINATE
     Indication: PRODUCT USED FOR UNKNOWN INDICATION
     Dosage: 1 DF, QD (1-0-0)
     Route: 065
  5. VIGANTOLETTEN [Concomitant]
     Active Substance: CHOLECALCIFEROL
     Indication: PRODUCT USED FOR UNKNOWN INDICATION
     Dosage: 1 DF, QD (1-0-0)
     Route: 065
  6. GABAPENTIN. [Concomitant]
     Active Substance: GABAPENTIN
     Indication: PRODUCT USED FOR UNKNOWN INDICATION
     Dosage: 1 DF, TID (1-1-1)
     Route: 065
  7. TREVILOR RETARD [Concomitant]
     Active Substance: VENLAFAXINE HYDROCHLORIDE
     Indication: PRODUCT USED FOR UNKNOWN INDICATION
     Dosage: 1 DF, QD (1-0-0)
     Route: 065
  8. FAMPYRA [Concomitant]
     Active Substance: DALFAMPRIDINE
     Indication: GAIT DISTURBANCE
     Dosage: 1 DF, BID (1-0-1)
     Route: 065
  9. VOLON A [Concomitant]
     Indication: MUSCLE SPASTICITY
     Dosage: 40 MG, UNK
     Route: 037
  10. METOPROLOL [Concomitant]
     Active Substance: METOPROLOL
     Indication: PRODUCT USED FOR UNKNOWN INDICATION
     Dosage: 1 DF, BID (1-0-1)
     Route: 065

REACTIONS (14)
  - Multiple sclerosis relapse [Unknown]
  - Gait disturbance [Unknown]
  - Visual impairment [Unknown]
  - Hemiparesis [Unknown]
  - Lymphocyte percentage decreased [Unknown]
  - Urinary incontinence [Unknown]
  - Lymphocyte count decreased [Unknown]
  - Depression [Unknown]
  - Blood uric acid increased [Unknown]
  - Hypoaesthesia [Unknown]
  - Ataxia [Unknown]
  - Dysphagia [Unknown]
  - Fatigue [Unknown]
  - Activated partial thromboplastin time prolonged [Unknown]
